FAERS Safety Report 6474992-3 (Version None)
Quarter: 2009Q4

REPORT INFORMATION
  Report Type: 
  Country: None (occurrence: None)
  Receive Date: 20091204
  Receipt Date: 20090715
  Transmission Date: 20100525
  Serious: Yes (Hospitalization, Other)
  Sender: FDA-Public Use
  Company Number: US-ELI_LILLY_AND_COMPANY-US200903007751

PATIENT
  Sex: Female

DRUGS (6)
  1. HUMALOG MIX 75/25 [Suspect]
     Dosage: 40 U, EACH MORNING
     Dates: start: 20060602
  2. HUMALOG MIX 75/25 [Suspect]
     Dosage: 42 U, EACH EVENING
     Dates: start: 20060927, end: 20061003
  3. ZETIA [Concomitant]
  4. METOPROLOL [Concomitant]
  5. ASPIRIN [Concomitant]
  6. RAMIPRIL [Concomitant]

REACTIONS (4)
  - ATRIOVENTRICULAR BLOCK [None]
  - CATHETERISATION CARDIAC [None]
  - CHEST DISCOMFORT [None]
  - HEADACHE [None]
